FAERS Safety Report 13564761 (Version 2)
Quarter: 2017Q2

REPORT INFORMATION
  Report Type: Spontaneous
  Country: PE (occurrence: PE)
  Receive Date: 20170519
  Receipt Date: 20170530
  Transmission Date: 20170830
  Serious: Yes (Other)
  Sender: FDA-Public Use
  Company Number: PE-PFIZER INC-2017218824

PATIENT
  Sex: Male

DRUGS (2)
  1. XALATAN [Suspect]
     Active Substance: LATANOPROST
     Indication: GLAUCOMA
     Dosage: 2 GTT(1 DROP IN EACH EYE), DAILY
  2. XALATAN [Suspect]
     Active Substance: LATANOPROST
     Dosage: 2 GTT (ON EACH EYE), DAILY
     Route: 047

REACTIONS (2)
  - Eye disorder [Recovered/Resolved]
  - Glaucoma [Recovered/Resolved]
